FAERS Safety Report 22320676 (Version 1)
Quarter: 2023Q2

REPORT INFORMATION
  Report Type: Report from Study
  Country: US (occurrence: US)
  Receive Date: 20230515
  Receipt Date: 20230515
  Transmission Date: 20230721
  Serious: No
  Sender: FDA-Public Use
  Company Number: US-002147023-NVSC2023US109018

PATIENT
  Age: 63 Year
  Sex: Male

DRUGS (1)
  1. ENTRESTO [Suspect]
     Active Substance: SACUBITRIL\VALSARTAN
     Indication: Product used for unknown indication
     Dosage: UNK, BID
     Route: 065
     Dates: start: 202302

REACTIONS (4)
  - Oropharyngeal pain [Unknown]
  - Heart rate increased [Unknown]
  - Cough [Unknown]
  - Dizziness [Unknown]

NARRATIVE: CASE EVENT DATE: 20230508
